FAERS Safety Report 13376909 (Version 3)
Quarter: 2017Q2

REPORT INFORMATION
  Report Type: Report from Study
  Country: US (occurrence: US)
  Receive Date: 20170328
  Receipt Date: 20170508
  Transmission Date: 20170830
  Serious: Yes (Hospitalization, Other)
  Sender: FDA-Public Use
  Company Number: US-GILEAD-2017-0263666

PATIENT
  Age: 78 Year
  Sex: Male

DRUGS (1)
  1. IDELALISIB [Suspect]
     Active Substance: IDELALISIB
     Indication: CHRONIC LYMPHOCYTIC LEUKAEMIA
     Dosage: 150 MG, BID
     Route: 048
     Dates: start: 20160616

REACTIONS (5)
  - Abasia [Unknown]
  - Oxygen consumption [Not Recovered/Not Resolved]
  - Dysstasia [Unknown]
  - Anaemia [Not Recovered/Not Resolved]
  - Joint swelling [Not Recovered/Not Resolved]
